FAERS Safety Report 12875729 (Version 1)
Quarter: 2016Q4

REPORT INFORMATION
  Report Type: Spontaneous
  Country: DE (occurrence: DE)
  Receive Date: 20161024
  Receipt Date: 20161024
  Transmission Date: 20170207
  Serious: Yes (Other)
  Sender: FDA-Public Use
  Company Number: DE-SUN PHARMACEUTICAL INDUSTRIES LTD-2016RR-126294

PATIENT
  Sex: Female

DRUGS (1)
  1. SIMVASTATIN. [Suspect]
     Active Substance: SIMVASTATIN
     Indication: PRODUCT USED FOR UNKNOWN INDICATION
     Dosage: UNK
     Route: 065
     Dates: start: 1999, end: 201609

REACTIONS (4)
  - Tongue discomfort [Recovered/Resolved]
  - Muscle spasms [Recovered/Resolved]
  - Tendon rupture [Unknown]
  - Trismus [Recovered/Resolved]

NARRATIVE: CASE EVENT DATE: 201601
